FAERS Safety Report 4937425-1 (Version None)
Quarter: 2006Q1

REPORT INFORMATION
  Report Type: 
  Country: None (occurrence: None)
  Receive Date: 20060302
  Receipt Date: 20060213
  Transmission Date: 20060701
  Serious: Yes (Other)
  Sender: FDA-Public Use
  Company Number: GB200602002612

PATIENT
  Age: 66 Year
  Sex: Female
  Weight: 69.8 kg

DRUGS (1)
  1. YENTREVE (DULOXETINE HYDROCHLORIDE UNKNOWN FORMULATION) UNKNOWN [Suspect]
     Indication: URINARY INCONTINENCE
     Dosage: 20 MG, 2/D, ORAL
     Route: 048
     Dates: start: 20060121, end: 20060124

REACTIONS (11)
  - ANOREXIA [None]
  - CONSTIPATION [None]
  - COORDINATION ABNORMAL [None]
  - DELIRIUM [None]
  - FEELING COLD [None]
  - HEADACHE [None]
  - INSOMNIA [None]
  - NAUSEA [None]
  - SLEEP DISORDER [None]
  - SOMNOLENCE [None]
  - TREMOR [None]
